FAERS Safety Report 10573037 (Version 1)
Quarter: 2014Q4

REPORT INFORMATION
  Report Type: Spontaneous
  Country: JP (occurrence: JP)
  Receive Date: 20141110
  Receipt Date: 20141110
  Transmission Date: 20150529
  Serious: Yes (Death, Other)
  Sender: FDA-Public Use
  Company Number: JP-TEVA-520759ISR

PATIENT
  Age: 26 Year
  Sex: Female

DRUGS (3)
  1. NIFEDIPINE. [Concomitant]
     Active Substance: NIFEDIPINE
     Indication: PULMONARY ARTERIAL HYPERTENSION
     Route: 065
     Dates: start: 200003
  2. EPOPROSTENOL [Suspect]
     Active Substance: EPOPROSTENOL
     Indication: PULMONARY ARTERIAL HYPERTENSION
     Dosage: MAXIMUM 85 NG/KG/MIN
     Route: 065
  3. WARFARIN [Concomitant]
     Active Substance: WARFARIN
     Indication: PULMONARY ARTERIAL HYPERTENSION
     Route: 065
     Dates: start: 200003

REACTIONS (2)
  - Right ventricular failure [Fatal]
  - Immunoglobulin G4 related sclerosing disease [Recovered/Resolved]

NARRATIVE: CASE EVENT DATE: 200701
